FAERS Safety Report 17109088 (Version 2)
Quarter: 2024Q1

REPORT INFORMATION
  Report Type: Other
  Country: AT (occurrence: None)
  Receive Date: 20191204
  Receipt Date: 20240126
  Transmission Date: 20240410
  Serious: No
  Sender: FDA-Public Use
  Company Number: AT-ROCHE-2481138

PATIENT
  Age: 43 Year
  Sex: Female
  Weight: 65 kg

DRUGS (37)
  1. HERCEPTIN [Suspect]
     Active Substance: TRASTUZUMAB
     Indication: Breast cancer metastatic
     Dosage: Q3W - EVERY 3 WEEKS
     Route: 042
     Dates: start: 20181107, end: 20200115
  2. HERCEPTIN [Suspect]
     Active Substance: TRASTUZUMAB
     Route: 042
     Dates: start: 20181016, end: 20181016
  3. PERJETA [Suspect]
     Active Substance: PERTUZUMAB
     Indication: Breast cancer metastatic
     Dosage: Q3W - EVERY 3 WEEKS
     Route: 042
     Dates: start: 20181107, end: 20200115
  4. PERJETA [Suspect]
     Active Substance: PERTUZUMAB
     Route: 042
     Dates: start: 20181016, end: 20181016
  5. DENOSUMAB [Suspect]
     Active Substance: DENOSUMAB
     Indication: Breast cancer metastatic
     Route: 058
     Dates: start: 20190326
  6. TAXOL [Suspect]
     Active Substance: PACLITAXEL
     Indication: Breast cancer metastatic
     Route: 042
     Dates: start: 20181017, end: 20191016
  7. TAXOL [Suspect]
     Active Substance: PACLITAXEL
     Route: 042
     Dates: start: 20191023, end: 20200219
  8. NOVALGIN (AUSTRIA) [Concomitant]
     Dosage: ONGOING = CHECKED
     Dates: start: 20181023
  9. DIPHENHYDRAMINE HYDROCHLORIDE [Concomitant]
     Active Substance: DIPHENHYDRAMINE HYDROCHLORIDE
     Dosage: ONGOING = CHECKED
  10. DEXAMETHASONE [Concomitant]
     Active Substance: DEXAMETHASONE
     Dosage: ONGOING = CHECKED
     Dates: start: 20181017
  11. ZOFRAN [Concomitant]
     Active Substance: ONDANSETRON HYDROCHLORIDE
     Dosage: ONGOING = CHECKED
     Dates: start: 20181017
  12. RANITIDINE HYDROCHLORIDE [Concomitant]
     Active Substance: RANITIDINE HYDROCHLORIDE
     Dosage: ONGOING = CHECKED
     Dates: start: 20181017
  13. EMEND [Concomitant]
     Active Substance: APREPITANT
     Dosage: ONGOING = CHECKED
     Dates: start: 20181120
  14. ASTEC (AUSTRIA) [Concomitant]
     Dosage: ONGOING = CHECKED
     Dates: start: 20181023
  15. NEURONTIN [Concomitant]
     Active Substance: GABAPENTIN
     Dosage: ONGOING = CHECKED
     Dates: start: 20181023
  16. BUPRENORPHINE HYDROCHLORIDE [Concomitant]
     Active Substance: BUPRENORPHINE HYDROCHLORIDE
     Dosage: ONGOING = CHECKED
     Dates: start: 20181023
  17. PARACODIN [Concomitant]
     Dosage: ONGOING = CHECKED
     Dates: start: 20180715
  18. POLYETHYLENE GLYCOL 3350\POTASSIUM CHLORIDE\SODIUM BICARBONATE\SODIUM [Concomitant]
     Active Substance: POLYETHYLENE GLYCOL 3350\POTASSIUM CHLORIDE\SODIUM BICARBONATE\SODIUM CHLORIDE
     Dosage: ONGOING = CHECKED
     Dates: start: 20181023
  19. ZOFRAN [Concomitant]
     Active Substance: ONDANSETRON HYDROCHLORIDE
     Dosage: ONGOING = CHECKED
     Dates: start: 20181023
  20. PASPERTIN [Concomitant]
     Dosage: ONGOING = CHECKED
     Dates: start: 20181023
  21. BANEOCIN [Concomitant]
     Route: 061
     Dates: start: 20190108, end: 20190114
  22. DIPRODERM (AUSTRIA) [Concomitant]
  23. FUCIDIN [Concomitant]
     Active Substance: FUSIDATE SODIUM
     Route: 048
     Dates: start: 20181113, end: 20181120
  24. DALACIN [Concomitant]
  25. AMDINOCILLIN PIVOXIL [Concomitant]
     Active Substance: AMDINOCILLIN PIVOXIL
  26. HYDROMORPHONE HYDROCHLORIDE [Concomitant]
     Active Substance: HYDROMORPHONE HYDROCHLORIDE
  27. LACTULOSE [Concomitant]
     Active Substance: LACTULOSE
  28. CAPSAICIN [Concomitant]
     Active Substance: CAPSAICIN
  29. LEVETIRACETAM [Concomitant]
     Active Substance: LEVETIRACETAM
  30. DIPYRONE [Concomitant]
     Active Substance: DIPYRONE
  31. CANDESARTAN [Concomitant]
     Active Substance: CANDESARTAN
  32. PANTOPRAZOLE SODIUM [Concomitant]
     Active Substance: PANTOPRAZOLE SODIUM
  33. BUPRETEC [Concomitant]
  34. APREPITANT [Concomitant]
     Active Substance: APREPITANT
  35. ONDANSETRON [Concomitant]
     Active Substance: ONDANSETRON
  36. DEXAMETHASONE [Concomitant]
     Active Substance: DEXAMETHASONE
  37. XGEVA [Concomitant]
     Active Substance: DENOSUMAB

REACTIONS (1)
  - Erysipelas [Recovered/Resolved]

NARRATIVE: CASE EVENT DATE: 20190925
